FAERS Safety Report 10397547 (Version 1)
Quarter: 2014Q1

REPORT INFORMATION
  Report Type: Spontaneous
  Country: US (occurrence: None)
  Receive Date: 20130815
  Receipt Date: 20130815
  Transmission Date: 20141002
  Serious: Yes (Other)
  Sender: FDA-Public Use
  Company Number: ADR-2013-00813

PATIENT
  Sex: Male

DRUGS (11)
  1. BACLOFEN INTRATHECAL - 50 MCG/ML [Suspect]
     Indication: CANCER PAIN
     Dosage: 12.254 MCG/DAY  SEE B5
  2. MORPHINE (INTRATHECAL) [Concomitant]
  3. PROTONIX [Concomitant]
  4. ENTERIC COATED [Concomitant]
  5. FLOMAX [Concomitant]
  6. NEURONTIN [Concomitant]
  7. ROBAXIN # 750 [Concomitant]
  8. BACLOFEN ORAL TABLET [Concomitant]
  9. OPANA ER [Concomitant]
  10. MORPHINE SULFATE [Concomitant]
  11. MORPHINE CR [Concomitant]

REACTIONS (12)
  - Constipation [None]
  - Dry mouth [None]
  - Joint stiffness [None]
  - Oedema peripheral [None]
  - Pain in extremity [None]
  - Muscle spasms [None]
  - Myalgia [None]
  - Urinary retention [None]
  - Back pain [None]
  - Emotional distress [None]
  - Musculoskeletal stiffness [None]
  - No therapeutic response [None]
